FAERS Safety Report 12932632 (Version 2)
Quarter: 2017Q3

REPORT INFORMATION
  Report Type: Spontaneous
  Country: US (occurrence: US)
  Receive Date: 20161111
  Receipt Date: 20170816
  Transmission Date: 20171127
  Serious: No
  Sender: FDA-Public Use
  Company Number: US-BRISTOL-MYERS SQUIBB COMPANY-BMS-2016-093721

PATIENT
  Sex: Male
  Weight: 77.1 kg

DRUGS (1)
  1. SPRYCEL [Suspect]
     Active Substance: DASATINIB
     Indication: CHRONIC MYELOID LEUKAEMIA
     Dosage: 140 MG, QD
     Route: 048

REACTIONS (6)
  - Musculoskeletal pain [Unknown]
  - Dizziness [Unknown]
  - Myalgia [Unknown]
  - Decreased appetite [Unknown]
  - Pain [Unknown]
  - Adverse event [Unknown]
